FAERS Safety Report 23935711 (Version 1)
Quarter: 2024Q2

REPORT INFORMATION
  Report Type: Report from Study
  Country: CO (occurrence: CO)
  Receive Date: 20240604
  Receipt Date: 20240604
  Transmission Date: 20240717
  Serious: Yes (Death, Hospitalization, Other)
  Sender: FDA-Public Use
  Company Number: CO-JNJFOC-20240531186

PATIENT
  Age: 75 Year
  Sex: Male
  Weight: 65 kg

DRUGS (1)
  1. IMBRUVICA [Suspect]
     Active Substance: IBRUTINIB
     Indication: Waldenstrom^s macroglobulinaemia
     Route: 048
     Dates: start: 20240215, end: 20240529

REACTIONS (5)
  - Waldenstrom^s macroglobulinaemia [Fatal]
  - Depression [Not Recovered/Not Resolved]
  - Anaemia [Fatal]
  - Malaise [Fatal]
  - Disorientation [Fatal]

NARRATIVE: CASE EVENT DATE: 20240426
